FAERS Safety Report 17484924 (Version 3)
Quarter: 2020Q2

REPORT INFORMATION
  Report Type: Spontaneous
  Country: US (occurrence: US)
  Receive Date: 20200302
  Receipt Date: 20200414
  Transmission Date: 20200713
  Serious: Yes (Hospitalization, Other)
  Sender: FDA-Public Use
  Company Number: US-SHIRE-US202008004

PATIENT
  Age: 37 Year
  Sex: Female

DRUGS (2)
  1. TAKHZYRO [Suspect]
     Active Substance: LANADELUMAB-FLYO
     Indication: HEREDITARY ANGIOEDEMA
     Dosage: 300 MILLIGRAM, 2X A WEEK
     Route: 065
  2. FIRAZYR [Suspect]
     Active Substance: ICATIBANT ACETATE
     Indication: HEREDITARY ANGIOEDEMA
     Dosage: 30 MILLIGRAM
     Route: 058

REACTIONS (6)
  - Muscle twitching [Unknown]
  - Seizure [Unknown]
  - Hereditary angioedema [Unknown]
  - Tremor [Unknown]
  - Joint lock [Unknown]
  - Syringomyelia [Unknown]

NARRATIVE: CASE EVENT DATE: 20200225
